FAERS Safety Report 10882574 (Version 1)
Quarter: 2015Q1

REPORT INFORMATION
  Report Type: Spontaneous
  Country: US (occurrence: None)
  Receive Date: 20150226
  Receipt Date: 20150226
  Transmission Date: 20150721
  Serious: Yes (Other)
  Sender: FDA-Public Use
  Company Number: 201502101

PATIENT
  Sex: Male

DRUGS (1)
  1. TESTIM [Suspect]
     Active Substance: TESTOSTERONE
     Indication: BLOOD TESTOSTERONE DECREASED
     Route: 062
     Dates: start: 201102, end: 201202

REACTIONS (7)
  - Myocardial infarction [None]
  - Family stress [None]
  - Anhedonia [None]
  - Pain [None]
  - Fear of disease [None]
  - Multiple injuries [None]
  - Anxiety [None]

NARRATIVE: CASE EVENT DATE: 20120217
